FAERS Safety Report 25412998 (Version 1)
Quarter: 2025Q2

REPORT INFORMATION
  Report Type: Spontaneous
  Country: US (occurrence: US)
  Receive Date: 20250609
  Receipt Date: 20250609
  Transmission Date: 20250717
  Serious: Yes (Other)
  Sender: TRIS PHARMA, INC.
  Company Number: US-TRIS PHARMA, INC.-25US012002

PATIENT

DRUGS (1)
  1. THEOPHYLLINE [Suspect]
     Active Substance: THEOPHYLLINE
     Indication: Hydrocephalus

REACTIONS (3)
  - Partial seizures [Recovering/Resolving]
  - Status epilepticus [Recovered/Resolved]
  - Drug effective for unapproved indication [Unknown]
